FAERS Safety Report 23869060 (Version 7)
Quarter: 2025Q2

REPORT INFORMATION
  Report Type: Report from Study
  Country: CA (occurrence: CA)
  Receive Date: 20240517
  Receipt Date: 20250505
  Transmission Date: 20250717
  Serious: Yes (Hospitalization, Other)
  Sender: TAKEDA
  Company Number: CA-TAKEDA-2023TUS039136

PATIENT
  Age: 62 Year
  Sex: Female

DRUGS (18)
  1. VEDOLIZUMAB [Suspect]
     Active Substance: VEDOLIZUMAB
     Indication: Colitis ulcerative
  2. VEDOLIZUMAB [Suspect]
     Active Substance: VEDOLIZUMAB
  3. VEDOLIZUMAB [Suspect]
     Active Substance: VEDOLIZUMAB
  4. VEDOLIZUMAB [Suspect]
     Active Substance: VEDOLIZUMAB
  5. VEDOLIZUMAB [Suspect]
     Active Substance: VEDOLIZUMAB
  6. VEDOLIZUMAB [Suspect]
     Active Substance: VEDOLIZUMAB
  7. VEDOLIZUMAB [Suspect]
     Active Substance: VEDOLIZUMAB
  8. VEDOLIZUMAB [Suspect]
     Active Substance: VEDOLIZUMAB
  9. VEDOLIZUMAB [Suspect]
     Active Substance: VEDOLIZUMAB
  10. VEDOLIZUMAB [Suspect]
     Active Substance: VEDOLIZUMAB
  11. MESALAMINE [Concomitant]
     Active Substance: MESALAMINE
  12. CHOLESTYRAMINE [Concomitant]
     Active Substance: CHOLESTYRAMINE
     Indication: Diarrhoea
  13. VITAMIN B12 [Concomitant]
     Active Substance: CYANOCOBALAMIN
  14. VITAMIN D [Concomitant]
     Active Substance: VITAMIN D NOS
  15. CALCIUM [Concomitant]
     Active Substance: CALCIUM
  16. BACLOFEN [Concomitant]
     Active Substance: BACLOFEN
  17. CORTISONE [Concomitant]
     Active Substance: CORTISONE
  18. METAMUCIL [Concomitant]
     Active Substance: PLANTAGO SEED

REACTIONS (29)
  - Nephrolithiasis [Recovered/Resolved]
  - Gastroenteritis [Recovered/Resolved]
  - Diarrhoea [Not Recovered/Not Resolved]
  - Haematuria [Recovered/Resolved]
  - Drug ineffective [Not Recovered/Not Resolved]
  - Productive cough [Recovered/Resolved]
  - Erythema nodosum [Not Recovered/Not Resolved]
  - Conjunctivitis [Unknown]
  - Discouragement [Unknown]
  - Sneezing [Unknown]
  - Illness [Unknown]
  - Nasal discharge discolouration [Recovered/Resolved]
  - Bronchial disorder [Unknown]
  - Defaecation urgency [Unknown]
  - Arthritis [Unknown]
  - Malaise [Recovering/Resolving]
  - Decreased appetite [Not Recovered/Not Resolved]
  - Rhinorrhoea [Unknown]
  - Blood pressure increased [Unknown]
  - Nasal congestion [Recovered/Resolved]
  - Chills [Recovered/Resolved]
  - Arthralgia [Recovered/Resolved]
  - Back pain [Unknown]
  - Headache [Unknown]
  - Cough [Recovering/Resolving]
  - Oropharyngeal pain [Recovered/Resolved]
  - Fatigue [Not Recovered/Not Resolved]
  - Sinusitis [Not Recovered/Not Resolved]
  - Pyrexia [Not Recovered/Not Resolved]

NARRATIVE: CASE EVENT DATE: 20230413
